FAERS Safety Report 25437632 (Version 2)
Quarter: 2025Q4

REPORT INFORMATION
  Report Type: Report from Study
  Country: CA (occurrence: CA)
  Receive Date: 20250616
  Receipt Date: 20251029
  Transmission Date: 20260118
  Serious: Yes (Other)
  Sender: AMGEN
  Company Number: CA-AMGEN-CANSL2025117397

PATIENT
  Age: 55 Year
  Sex: Female

DRUGS (1)
  1. ADALIMUMAB [Suspect]
     Active Substance: ADALIMUMAB
     Indication: Crohn^s disease
     Dosage: 160 MG AT WEEK 0, 80 MG AT WEEK 2, 40 MG AT WEEK 4, AND EVERY OTHER WEEK
     Route: 065
     Dates: start: 20240315

REACTIONS (1)
  - Systemic lupus erythematosus [Unknown]
